FAERS Safety Report 9372517 (Version 1)
Quarter: 2013Q2

REPORT INFORMATION
  Report Type: Report from Study
  Country: US (occurrence: US)
  Receive Date: 20130627
  Receipt Date: 20130627
  Transmission Date: 20140414
  Serious: Yes (Hospitalization, Other)
  Sender: FDA-Public Use
  Company Number: US-MYLANLABS-2013S1000125

PATIENT
  Age: 32 Year
  Sex: Male
  Weight: 99 kg

DRUGS (6)
  1. CLOZAPINE TABLETS [Suspect]
     Indication: PSYCHOTIC DISORDER
     Route: 048
     Dates: start: 20121221, end: 201301
  2. CLOZAPINE TABLETS [Suspect]
     Indication: SCHIZOPHRENIA
     Route: 048
     Dates: start: 20121221, end: 201301
  3. CLOZAPINE TABLETS [Suspect]
     Indication: PSYCHOTIC DISORDER
     Dates: start: 201301, end: 20130113
  4. CLOZAPINE TABLETS [Suspect]
     Indication: SCHIZOPHRENIA
     Dates: start: 201301, end: 20130113
  5. ZOLOFT [Concomitant]
     Route: 048
     Dates: start: 20130103
  6. COGENTIN [Concomitant]
     Route: 048
     Dates: start: 20130108

REACTIONS (2)
  - Granulocytopenia [Recovered/Resolved]
  - Leukopenia [Recovered/Resolved]
